FAERS Safety Report 5515663-7 (Version None)
Quarter: 2007Q4

REPORT INFORMATION
  Report Type: 
  Country: None (occurrence: None)
  Receive Date: 20071113
  Receipt Date: 20070803
  Transmission Date: 20080405
  Serious: No
  Sender: FDA-Public Use
  Company Number: A0668114A

PATIENT
  Age: 69 Year
  Sex: Female

DRUGS (6)
  1. COREG [Suspect]
     Indication: HYPERTENSION
     Dosage: 12.5MG TWICE PER DAY
     Route: 048
     Dates: start: 20060801
  2. SIMVASTATIN [Concomitant]
  3. TIMOLOL MALEATE [Concomitant]
  4. DIOVAN [Concomitant]
  5. TRIAMTERENE AND HYDROCHLOROTHIAZIDE [Concomitant]
  6. FORTAMET [Concomitant]

REACTIONS (1)
  - WEIGHT INCREASED [None]
